FAERS Safety Report 5715749-8 (Version None)
Quarter: 2008Q2

REPORT INFORMATION
  Report Type: 
  Country: None (occurrence: None)
  Receive Date: 20080424
  Receipt Date: 20080414
  Transmission Date: 20081010
  Serious: Yes (Other)
  Sender: FDA-Public Use
  Company Number: AT-BRISTOL-MYERS SQUIBB COMPANY-14160469

PATIENT
  Age: 11 Year
  Sex: Male

DRUGS (1)
  1. IFOSFAMIDE [Suspect]
     Dosage: 1 DOSAGE FORM = 3 G/M2
     Route: 042
     Dates: start: 20070915, end: 20070917

REACTIONS (4)
  - ELECTROENCEPHALOGRAM ABNORMAL [None]
  - SOMNOLENCE [None]
  - TREMOR [None]
  - UNRESPONSIVE TO STIMULI [None]
